FAERS Safety Report 10385948 (Version 1)
Quarter: 2014Q3

REPORT INFORMATION
  Report Type: Spontaneous
  Country: US (occurrence: US)
  Receive Date: 20140814
  Receipt Date: 20140814
  Transmission Date: 20150326
  Serious: Yes (Hospitalization, Other)
  Sender: FDA-Public Use
  Company Number: US-B.I. PHARMACEUTICALS,INC./RIDGEFIELD-2014-BI-36917BP

PATIENT
  Age: 78 Year
  Sex: Female

DRUGS (9)
  1. LISINOPRIL. [Concomitant]
     Active Substance: LISINOPRIL
     Dosage: 40 MG
     Route: 065
  2. LASIX [Concomitant]
     Active Substance: FUROSEMIDE
     Dosage: 20 MG
     Route: 065
  3. POTASSIUM [Concomitant]
     Active Substance: POTASSIUM
     Dosage: 40 MEQ
     Route: 065
  4. ASPIRIN. [Concomitant]
     Active Substance: ASPIRIN
     Route: 065
     Dates: end: 20110923
  5. COREG [Concomitant]
     Active Substance: CARVEDILOL
     Dosage: 25 MG
     Route: 065
  6. ZOCOR [Concomitant]
     Active Substance: SIMVASTATIN
     Dosage: 40 MG
     Route: 065
  7. GLYBURIDE. [Concomitant]
     Active Substance: GLYBURIDE
     Route: 065
  8. METFORMIN [Concomitant]
     Active Substance: METFORMIN HYDROCHLORIDE
     Dosage: DOSE: 2.5/500
     Route: 065
  9. PRADAXA [Suspect]
     Active Substance: DABIGATRAN ETEXILATE MESYLATE
     Indication: ATRIAL FIBRILLATION
     Route: 065
     Dates: start: 201109, end: 20110923

REACTIONS (3)
  - Upper gastrointestinal haemorrhage [Recovered/Resolved]
  - Hypotension [Unknown]
  - Haemorrhagic anaemia [Unknown]

NARRATIVE: CASE EVENT DATE: 201109
